FAERS Safety Report 4630543-7 (Version None)
Quarter: 2005Q2

REPORT INFORMATION
  Report Type: 
  Country: None (occurrence: None)
  Receive Date: 20050408
  Receipt Date: 20050302
  Transmission Date: 20051028
  Serious: Yes (Other)
  Sender: FDA-Public Use
  Company Number: IE-GLAXOSMITHKLINE-B0374179A

PATIENT
  Age: 29 Year
  Sex: Female
  Weight: 72 kg

DRUGS (3)
  1. LAMICTAL [Suspect]
     Indication: EPILEPSY
     Dosage: 475MG PER DAY
     Route: 065
     Dates: start: 20020101
  2. TOPIRAMATE [Concomitant]
     Indication: EPILEPSY
     Dosage: 75MG PER DAY
     Route: 065
     Dates: start: 20050106, end: 20050303
  3. CLOBAZAM [Concomitant]
     Indication: EPILEPSY
     Dosage: 15MG PER DAY
     Dates: start: 20041111, end: 20050303

REACTIONS (2)
  - FOETAL HAEMOGLOBIN INCREASED [None]
  - NORMAL DELIVERY [None]
